FAERS Safety Report 9690060 (Version 2)
Quarter: 2014Q2

REPORT INFORMATION
  Report Type: Spontaneous
  Country: US (occurrence: US)
  Receive Date: 20131115
  Receipt Date: 20140423
  Transmission Date: 20141212
  Serious: Yes (Hospitalization)
  Sender: FDA-Public Use
  Company Number: US-BAYER-2013-138157

PATIENT
  Age: 34 Year
  Sex: Female
  Weight: 113.38 kg

DRUGS (4)
  1. YASMIN [Suspect]
     Dosage: UNK
  2. IRON [Concomitant]
  3. VITAMIN C [Concomitant]
  4. PROTONIX [Concomitant]

REACTIONS (5)
  - Deep vein thrombosis [None]
  - Pulmonary embolism [None]
  - Thrombophlebitis superficial [None]
  - Pelvic venous thrombosis [None]
  - Vena cava thrombosis [Recovering/Resolving]
